FAERS Safety Report 10103242 (Version 2)
Quarter: 2014Q2

REPORT INFORMATION
  Report Type: Other
  Country: US (occurrence: US)
  Receive Date: 20140424
  Receipt Date: 20140609
  Transmission Date: 20141212
  Serious: Yes (Hospitalization, Other)
  Sender: FDA-Public Use
  Company Number: US-GSKPPD-2014GSK000070

PATIENT
  Age: 67 Year
  Sex: Male

DRUGS (5)
  1. AVANDIA [Suspect]
     Indication: DIABETES MELLITUS
     Route: 048
     Dates: start: 200004
  2. NORVASC [Concomitant]
     Dates: start: 200004
  3. FUROSEMIDE [Concomitant]
     Dates: start: 200004
  4. ASPIRIN [Concomitant]
     Dates: start: 200210
  5. METOPROLOL [Concomitant]
     Dates: start: 200211

REACTIONS (2)
  - Myocardial infarction [None]
  - Haemorrhagic cerebral infarction [Recovered/Resolved]
